FAERS Safety Report 20230297 (Version 1)
Quarter: 2021Q4

REPORT INFORMATION
  Report Type: Spontaneous
  Country: FR (occurrence: FR)
  Receive Date: 20211226
  Receipt Date: 20211226
  Transmission Date: 20220303
  Serious: Yes (Hospitalization)
  Sender: FDA-Public Use
  Company Number: FR-MACLEODS PHARMACEUTICALS US LTD-MAC2021033824

PATIENT

DRUGS (4)
  1. ESCITALOPRAM [Suspect]
     Active Substance: ESCITALOPRAM OXALATE
     Indication: Antidepressant therapy
     Dosage: 10 MILLIGRAM
     Route: 065
     Dates: start: 20080220
  2. ESCITALOPRAM [Suspect]
     Active Substance: ESCITALOPRAM OXALATE
     Dosage: 280 MILLIGRAM, SINGLE, AT 11:00 AM
     Route: 048
     Dates: start: 20080307
  3. ALPRAZOLAM [Concomitant]
     Active Substance: ALPRAZOLAM
     Indication: Anxiolytic therapy
     Dosage: 0.5 MILLIGRAM
     Route: 065
  4. Celestene chronodose/betamethasone [Concomitant]
     Indication: Prophylaxis
     Dosage: UNK
     Route: 030

REACTIONS (10)
  - Toxicity to various agents [Unknown]
  - Nervous system disorder [Recovered/Resolved]
  - Speech disorder [Recovered/Resolved]
  - Motor dysfunction [Recovered/Resolved]
  - Dry mouth [Recovered/Resolved]
  - Somnolence [Recovered/Resolved]
  - Confusional state [Recovered/Resolved]
  - Mydriasis [Recovered/Resolved]
  - Intentional overdose [Unknown]
  - Maternal exposure during pregnancy [Unknown]

NARRATIVE: CASE EVENT DATE: 20080307
